FAERS Safety Report 22176446 (Version 2)
Quarter: 2023Q2

REPORT INFORMATION
  Report Type: Spontaneous
  Country: US (occurrence: US)
  Receive Date: 20230405
  Receipt Date: 20230411
  Transmission Date: 20230722
  Serious: No
  Sender: FDA-Public Use
  Company Number: US-Calliditas-2023CAL00304

PATIENT
  Age: 68 Year
  Sex: Male

DRUGS (10)
  1. TARPEYO [Suspect]
     Active Substance: BUDESONIDE
     Indication: IgA nephropathy
     Dosage: 8 MG (4 MG CAPSULES) ONCE DAILY
     Route: 048
     Dates: start: 20221215, end: 20230404
  2. FISH OIL [Concomitant]
     Active Substance: FISH OIL
  3. CHOLECALCIFEROL [Concomitant]
     Active Substance: CHOLECALCIFEROL
  4. LISINOPRIL [Concomitant]
     Active Substance: LISINOPRIL
  5. CARVEDILOL [Concomitant]
     Active Substance: CARVEDILOL
  6. LIPITOR [Concomitant]
     Active Substance: ATORVASTATIN CALCIUM
  7. ASPIRIN [Concomitant]
     Active Substance: ASPIRIN
  8. FARXIGA [Concomitant]
     Active Substance: DAPAGLIFLOZIN PROPANEDIOL
  9. LOKELMA [Concomitant]
     Active Substance: SODIUM ZIRCONIUM CYCLOSILICATE
  10. FLOMAX [Concomitant]
     Active Substance: TAMSULOSIN HYDROCHLORIDE

REACTIONS (3)
  - Pharyngeal swelling [Not Recovered/Not Resolved]
  - Dysphagia [Not Recovered/Not Resolved]
  - Prescribed underdose [Recovered/Resolved]

NARRATIVE: CASE EVENT DATE: 20221201
